FAERS Safety Report 4981843-2 (Version None)
Quarter: 2006Q2

REPORT INFORMATION
  Report Type: 
  Country: None (occurrence: None)
  Receive Date: 20060421
  Receipt Date: 20060421
  Transmission Date: 20061013
  Serious: Yes (Hospitalization)
  Sender: FDA-Public Use
  Company Number: None

PATIENT
  Sex: Male
  Weight: 105.2345 kg

DRUGS (4)
  1. CLEOCIN [Suspect]
     Indication: CELLULITIS
     Dosage: 600 MG TID PO
     Route: 048
     Dates: start: 20060101, end: 20060417
  2. RIFAMPIN [Suspect]
     Dosage: 300 MG BID PO
     Route: 048
  3. MORPHINE [Concomitant]
  4. VANCOMYCIN [Concomitant]

REACTIONS (11)
  - ARTHRALGIA [None]
  - DISCOMFORT [None]
  - DYSPHAGIA [None]
  - PAIN OF SKIN [None]
  - PHARYNGOLARYNGEAL PAIN [None]
  - RASH MACULAR [None]
  - RASH PAPULAR [None]
  - RASH PRURITIC [None]
  - SWELLING [None]
  - THERAPEUTIC RESPONSE DECREASED [None]
  - URTICARIA [None]
